FAERS Safety Report 22980041 (Version 3)
Quarter: 2024Q2

REPORT INFORMATION
  Report Type: Report from Study
  Country: US (occurrence: US)
  Receive Date: 20230925
  Receipt Date: 20240612
  Transmission Date: 20240715
  Serious: No
  Sender: FDA-Public Use
  Company Number: US-BRISTOL-MYERS SQUIBB COMPANY-2023-135433

PATIENT
  Age: 72 Year
  Sex: Female
  Weight: 87.09 kg

DRUGS (2)
  1. REVLIMID [Suspect]
     Active Substance: LENALIDOMIDE
     Indication: Plasma cell myeloma
     Route: 048
  2. REVLIMID [Suspect]
     Active Substance: LENALIDOMIDE
     Route: 048
     Dates: start: 201704

REACTIONS (4)
  - Platelet count decreased [Recovering/Resolving]
  - Tooth injury [Unknown]
  - Off label use [Unknown]
  - Tooth disorder [Unknown]
